FAERS Safety Report 19518280 (Version 1)
Quarter: 2021Q3

REPORT INFORMATION
  Report Type: Spontaneous
  Country: US (occurrence: US)
  Receive Date: 20210712
  Receipt Date: 20210712
  Transmission Date: 20211014
  Serious: No
  Sender: FDA-Public Use
  Company Number: US-CIPLA LTD.-2021US04404

PATIENT

DRUGS (6)
  1. ZIDOVUDINE. [Suspect]
     Active Substance: ZIDOVUDINE
     Dosage: UNK, TOTAL DAILY DOSE OF 1, COURSE 2
     Route: 042
     Dates: start: 2019, end: 2019
  2. ATAZANAVIR. [Suspect]
     Active Substance: ATAZANAVIR
     Indication: ANTIRETROVIRAL THERAPY
     Dosage: UNK, TOTAL DAILY DOSE OF 300 (UNITS UNKNOWN), COURSE 1
     Route: 048
  3. ATAZANAVIR. [Suspect]
     Active Substance: ATAZANAVIR
     Dosage: UNK, DOSE OF 400 (UNITS UNKNOWN) DAILY, COURSE 2
     Route: 048
     Dates: start: 2019
  4. ZIDOVUDINE. [Suspect]
     Active Substance: ZIDOVUDINE
     Indication: ANTIRETROVIRAL THERAPY
     Dosage: UNK, TOTAL DAILY DOSE OF 2, COURSE 1
     Route: 042
     Dates: start: 2019, end: 2019
  5. RITONAVIR. [Suspect]
     Active Substance: RITONAVIR
     Indication: ANTIRETROVIRAL THERAPY
     Dosage: UNK, TOTDAL DAILY DOSE OF 1, COURSE 1
     Route: 048
  6. EMTRICITABINE/TENOFOVIR [Suspect]
     Active Substance: EMTRICITABINE\TENOFOVIR
     Indication: ANTIRETROVIRAL THERAPY
     Dosage: UNK, TOTAL DAILY DOSE OF 1, COURSE 1
     Route: 048

REACTIONS (2)
  - Exposure during pregnancy [Unknown]
  - No adverse event [Unknown]
